FAERS Safety Report 10584877 (Version 6)
Quarter: 2017Q1

REPORT INFORMATION
  Report Type: Report from Study
  Country: US (occurrence: US)
  Receive Date: 20141114
  Receipt Date: 20170213
  Transmission Date: 20170428
  Serious: Yes (Hospitalization, Disabling)
  Sender: FDA-Public Use
  Company Number: US-SA-2014SA107902

PATIENT
  Age: 57 Year
  Sex: Female

DRUGS (2)
  1. AMPYRA [Concomitant]
     Active Substance: DALFAMPRIDINE
     Indication: MULTIPLE SCLEROSIS
     Dates: start: 20140611, end: 20150201
  2. AUBAGIO [Suspect]
     Active Substance: TERIFLUNOMIDE
     Indication: MULTIPLE SCLEROSIS
     Route: 048
     Dates: start: 20140725

REACTIONS (10)
  - Cystitis [Unknown]
  - Decreased appetite [Unknown]
  - Mobility decreased [Unknown]
  - Head injury [Unknown]
  - Spinal operation [Unknown]
  - Fall [Unknown]
  - Unevaluable event [Unknown]
  - Dysstasia [Unknown]
  - Hypertension [Not Recovered/Not Resolved]
  - Hypotension [Unknown]
